FAERS Safety Report 12297671 (Version 1)
Quarter: 2016Q2

REPORT INFORMATION
  Report Type: Report from Study
  Country: US (occurrence: US)
  Receive Date: 20160422
  Receipt Date: 20160422
  Transmission Date: 20160815
  Serious: No
  Sender: FDA-Public Use
  Company Number: US-AMGEN-USASL2016049677

PATIENT
  Age: 56 Year
  Sex: Male

DRUGS (1)
  1. ENBREL [Suspect]
     Active Substance: ETANERCEPT
     Indication: PRODUCT USED FOR UNKNOWN INDICATION
     Dosage: UNK
     Route: 065

REACTIONS (10)
  - Drug effect incomplete [Unknown]
  - Skin plaque [Unknown]
  - Drug effect decreased [Unknown]
  - Incorrect product storage [Unknown]
  - Oral infection [Unknown]
  - Skin disorder [Unknown]
  - Breath holding [Unknown]
  - Confusional state [Unknown]
  - Nervousness [Unknown]
  - Adverse event [Unknown]

NARRATIVE: CASE EVENT DATE: 2015
